FAERS Safety Report 19355303 (Version 1)
Quarter: 2021Q2

REPORT INFORMATION
  Report Type: Spontaneous
  Country: TH (occurrence: TH)
  Receive Date: 20210529
  Receipt Date: 20210529
  Transmission Date: 20210717
  Serious: Yes (Other)
  Sender: FDA-Public Use
  Company Number: None

PATIENT
  Age: 45 Year
  Sex: Male
  Weight: 86.85 kg

DRUGS (1)
  1. VITACCINO [DIETARY SUPPLEMENT] [Suspect]
     Active Substance: DIETARY SUPPLEMENT
     Indication: SUPPLEMENTATION THERAPY
     Dosage: ?          QUANTITY:10 10;?
     Route: 048
     Dates: start: 20210526, end: 20210529

REACTIONS (1)
  - Palpitations [None]

NARRATIVE: CASE EVENT DATE: 20210529
